FAERS Safety Report 15316397 (Version 2)
Quarter: 2018Q4

REPORT INFORMATION
  Report Type: Spontaneous
  Country: US (occurrence: US)
  Receive Date: 20180824
  Receipt Date: 20181005
  Transmission Date: 20190204
  Serious: No
  Sender: FDA-Public Use
  Company Number: US-VIIV HEALTHCARE LIMITED-US2018GSK152628

PATIENT
  Sex: Male
  Weight: 123.81 kg

DRUGS (2)
  1. DOLUTEGRAVIR + LAMIVUDINE [Concomitant]
  2. TRIUMEQ [Suspect]
     Active Substance: ABACAVIR SULFATE\DOLUTEGRAVIR SODIUM\LAMIVUDINE
     Indication: HIV INFECTION
     Dosage: UNK, QD
     Route: 048
     Dates: start: 20180516, end: 20180718

REACTIONS (1)
  - Liver function test increased [Recovered/Resolved]
